FAERS Safety Report 15463076 (Version 1)
Quarter: 2018Q4

REPORT INFORMATION
  Report Type: Spontaneous
  Country: JP (occurrence: JP)
  Receive Date: 20181004
  Receipt Date: 20181004
  Transmission Date: 20190204
  Serious: Yes (Death, Other)
  Sender: FDA-Public Use
  Company Number: JP-TEVA-2018-JP-001707J

PATIENT
  Age: 17 Year
  Sex: Female

DRUGS (11)
  1. SELBEX [Concomitant]
     Active Substance: TEPRENONE
     Dosage: 150 MILLIGRAM DAILY;
     Route: 048
  2. ASPARA POTASSIUM [Concomitant]
     Active Substance: POTASSIUM ASPARTATE
     Dosage: 2700 MILLIGRAM DAILY;
     Route: 048
  3. ISODINE [Concomitant]
     Active Substance: POVIDONE-IODINE
     Route: 065
  4. ADONA [CARBAZOCHROME SODIUM SULFONATE] [Concomitant]
     Active Substance: CARBAZOCHROME SODIUM SULFONATE
     Dosage: 90 MILLIGRAM DAILY;
     Route: 048
  5. GASTER [Concomitant]
     Active Substance: FAMOTIDINE
     Dosage: 20 MILLIGRAM DAILY;
     Route: 048
  6. FLUCONAZOLE. [Concomitant]
     Active Substance: FLUCONAZOLE
     Dosage: 100 MILLIGRAM DAILY;
     Route: 048
  7. ADOFEED [Concomitant]
     Active Substance: FLURBIPROFEN
     Route: 065
  8. PREDNISOLONE. [Concomitant]
     Active Substance: PREDNISOLONE
     Route: 048
  9. CONSTAN 0.4MG.TABLETS [Suspect]
     Active Substance: ALPRAZOLAM
     Indication: SUICIDE ATTEMPT
  10. CONSTAN 0.4MG.TABLETS [Suspect]
     Active Substance: ALPRAZOLAM
     Indication: ANXIETY
     Dosage: .8 MILLIGRAM DAILY;
     Route: 048
     Dates: start: 20140110, end: 20140414
  11. GRACEPTOR [Concomitant]
     Active Substance: TACROLIMUS
     Dosage: 12 MILLIGRAM DAILY;
     Route: 048

REACTIONS (2)
  - Product use in unapproved indication [Unknown]
  - Completed suicide [Fatal]

NARRATIVE: CASE EVENT DATE: 20140414
